FAERS Safety Report 8213814-7 (Version None)
Quarter: 2012Q1

REPORT INFORMATION
  Report Type: 
  Country: None (occurrence: None)
  Receive Date: 20120316
  Receipt Date: 20120306
  Transmission Date: 20120608
  Serious: Yes (Hospitalization, Other)
  Sender: FDA-Public Use
  Company Number: US-BIOGENIDEC-2008BI002198

PATIENT
  Sex: Female

DRUGS (26)
  1. PROZAC [Concomitant]
     Indication: PRODUCT USED FOR UNKNOWN INDICATION
  2. PRILOSEC [Concomitant]
     Indication: DYSPEPSIA
  3. HYDROXYZINE [Concomitant]
  4. PILOCARPINE [Concomitant]
     Indication: PRODUCT USED FOR UNKNOWN INDICATION
  5. LISINOPRIL [Concomitant]
     Indication: PRODUCT USED FOR UNKNOWN INDICATION
  6. NEURONTIN [Concomitant]
  7. NEURONTIN [Concomitant]
  8. AVONEX [Suspect]
     Route: 030
     Dates: start: 20030101, end: 20120101
  9. FLUCONAZOLE [Concomitant]
     Indication: PRODUCT USED FOR UNKNOWN INDICATION
  10. GABAPENTIN [Concomitant]
     Indication: PRODUCT USED FOR UNKNOWN INDICATION
  11. XANAX [Concomitant]
  12. XANAX [Concomitant]
  13. AVONEX [Suspect]
     Indication: MULTIPLE SCLEROSIS
     Route: 030
     Dates: start: 19960503, end: 20030101
  14. FOSAMAX [Concomitant]
     Indication: PRODUCT USED FOR UNKNOWN INDICATION
  15. AMANTADINE HCL [Concomitant]
     Indication: PRODUCT USED FOR UNKNOWN INDICATION
  16. METHADONE HCL [Concomitant]
     Indication: PRODUCT USED FOR UNKNOWN INDICATION
  17. AMITRIPTYLINE HCL [Concomitant]
     Indication: PRODUCT USED FOR UNKNOWN INDICATION
  18. STRATTERA [Concomitant]
     Indication: PRODUCT USED FOR UNKNOWN INDICATION
  19. PROTONIX [Concomitant]
     Indication: PRODUCT USED FOR UNKNOWN INDICATION
  20. NAPROXEN [Concomitant]
     Indication: PRODUCT USED FOR UNKNOWN INDICATION
  21. ALPRAZOLAM [Concomitant]
     Indication: PRODUCT USED FOR UNKNOWN INDICATION
  22. SENOKOT [Concomitant]
     Indication: PRODUCT USED FOR UNKNOWN INDICATION
  23. HYDROXYZINE [Concomitant]
  24. METHADONE HCL [Concomitant]
  25. NORVASC [Concomitant]
     Indication: PRODUCT USED FOR UNKNOWN INDICATION
  26. NIASPAN [Concomitant]
     Indication: PRODUCT USED FOR UNKNOWN INDICATION

REACTIONS (18)
  - CONVULSION [None]
  - MYOCARDIAL INFARCTION [None]
  - BASAL GANGLIA STROKE [None]
  - MENTAL STATUS CHANGES [None]
  - HYPERTENSION [None]
  - SKIN ULCER [None]
  - DIZZINESS [None]
  - CEREBROVASCULAR ACCIDENT [None]
  - MOBILITY DECREASED [None]
  - DEEP VEIN THROMBOSIS [None]
  - DRUG INTERACTION [None]
  - BACK PAIN [None]
  - GASTRIC HAEMORRHAGE [None]
  - OVERDOSE [None]
  - INTERNATIONAL NORMALISED RATIO ABNORMAL [None]
  - ATRIAL SEPTAL DEFECT [None]
  - COLONIC POLYP [None]
  - GASTRITIS EROSIVE [None]
